FAERS Safety Report 14738416 (Version 1)
Quarter: 2018Q2

REPORT INFORMATION
  Report Type: Spontaneous
  Country: AT (occurrence: AT)
  Receive Date: 20180409
  Receipt Date: 20180409
  Transmission Date: 20180711
  Serious: Yes (Hospitalization, Other)
  Sender: FDA-Public Use
  Company Number: AT-ELI_LILLY_AND_COMPANY-AT201804002048

PATIENT
  Sex: Female

DRUGS (2)
  1. MEKINIST [Suspect]
     Active Substance: TRAMETINIB DIMETHYL SULFOXIDE
     Indication: COLORECTAL CANCER METASTATIC
     Dosage: 2 MG, UNKNOWN
     Route: 065
     Dates: start: 20180126, end: 20180309
  2. ERBITUX [Suspect]
     Active Substance: CETUXIMAB
     Indication: COLORECTAL CANCER METASTATIC
     Dosage: UNK, UNKNOWN
     Route: 065
     Dates: start: 20180128

REACTIONS (6)
  - Acne [Unknown]
  - Diarrhoea [Unknown]
  - Mucosal inflammation [Unknown]
  - Off label use [Unknown]
  - General physical health deterioration [Unknown]
  - Skin disorder [Unknown]
